FAERS Safety Report 20651749 (Version 2)
Quarter: 2022Q2

REPORT INFORMATION
  Report Type: Spontaneous
  Country: US (occurrence: US)
  Receive Date: 20220330
  Receipt Date: 20220531
  Transmission Date: 20220720
  Serious: No
  Sender: FDA-Public Use
  Company Number: US-BRISTOL-MYERS SQUIBB COMPANY-2022-012177

PATIENT
  Age: 60 Year
  Sex: Female
  Weight: 88.0 kg

DRUGS (1)
  1. ORENCIA [Suspect]
     Active Substance: ABATACEPT
     Indication: Rheumatoid arthritis
     Route: 058
     Dates: start: 202104

REACTIONS (5)
  - Device defective [Unknown]
  - Arthralgia [Unknown]
  - Joint swelling [Unknown]
  - Injection site pain [Unknown]
  - Abdominal pain [Unknown]
